FAERS Safety Report 7183909-8 (Version None)
Quarter: 2010Q4

REPORT INFORMATION
  Report Type: 
  Country: None (occurrence: None)
  Receive Date: 20101222
  Receipt Date: 20101213
  Transmission Date: 20110411
  Serious: Yes (Hospitalization)
  Sender: FDA-Public Use
  Company Number: IT-ROCHE-747794

PATIENT
  Sex: Male

DRUGS (4)
  1. AVASTIN [Suspect]
     Route: 042
     Dates: start: 20081112, end: 20081112
  2. FLUOROURACIL [Concomitant]
     Dosage: DOSE:2400 + 800 MG,FREQUENCY: UNKNOWN
     Route: 042
     Dates: start: 20081112, end: 20081112
  3. CAMPTOSAR [Concomitant]
     Dosage: FREQUENCY: UNKNOWN
     Route: 042
     Dates: start: 20081112, end: 20081112
  4. CALCIUM LEVOFOLINATE [Concomitant]
     Dosage: FREQUENCY: UNKNOWN
     Route: 042
     Dates: start: 20081112, end: 20081112

REACTIONS (2)
  - DISORIENTATION [None]
  - MOTOR DYSFUNCTION [None]
